FAERS Safety Report 17959332 (Version 2)
Quarter: 2020Q3

REPORT INFORMATION
  Report Type: Spontaneous
  Country: RO (occurrence: RO)
  Receive Date: 20200629
  Receipt Date: 20200703
  Transmission Date: 20201103
  Serious: Yes (Death, Other)
  Sender: FDA-Public Use
  Company Number: NVSC2020RO130491

PATIENT
  Age: 63 Year
  Sex: Female

DRUGS (19)
  1. METHYLPREDNISOLONE. [Suspect]
     Active Substance: METHYLPREDNISOLONE
     Dosage: 1 MG/KG, QD (ONE MONTH WITH TAPERING)
     Route: 048
  2. CYCLOPHOSPHAMIDE. [Suspect]
     Active Substance: CYCLOPHOSPHAMIDE
     Indication: POLYCHONDRITIS
     Dosage: 15 MG/KG (6 PULSES)
     Route: 042
  3. OFLOXACIN. [Concomitant]
     Active Substance: OFLOXACIN
     Indication: POLYCHONDRITIS
     Dosage: 0.3 % (3 GUT/DAY)
     Route: 061
  4. LEFLUNOMIDE. [Suspect]
     Active Substance: LEFLUNOMIDE
     Indication: POLYCHONDRITIS
     Dosage: 20 MG, QD
     Route: 065
  5. LEFLUNOMIDE. [Suspect]
     Active Substance: LEFLUNOMIDE
     Dosage: 10 MG, QD
     Route: 065
  6. INFLIXIMAB [Suspect]
     Active Substance: INFLIXIMAB
     Dosage: 3 MG/KG, ONCE/SINGLE
     Route: 065
  7. CYCLOSPORINE. [Suspect]
     Active Substance: CYCLOSPORINE
     Dosage: STOPPED DUE TO SEVERE HYPERTENSION AND RENAL INSUFFICIENCY
     Route: 065
  8. AZATHIOPRINE. [Suspect]
     Active Substance: AZATHIOPRINE
     Dosage: STOPPED DUE TO INTOLERANCE
     Route: 065
  9. TOBRAMYCIN. [Concomitant]
     Active Substance: TOBRAMYCIN
     Indication: POLYCHONDRITIS
     Dosage: 3 MG
     Route: 061
  10. CYCLOPHOSPHAMIDE. [Suspect]
     Active Substance: CYCLOPHOSPHAMIDE
     Dosage: 15 MG/KG (6 PULSES), MONTHLY
     Route: 042
  11. METHYLPREDNISOLONE. [Suspect]
     Active Substance: METHYLPREDNISOLONE
     Indication: POLYCHONDRITIS
     Dosage: 1 G, QD
     Route: 042
  12. DEXAMETHASONE. [Concomitant]
     Active Substance: DEXAMETHASONE
     Indication: POLYCHONDRITIS
     Dosage: 1 MG (5 GUT/DAY)
     Route: 061
  13. INFLIXIMAB [Suspect]
     Active Substance: INFLIXIMAB
     Dosage: 3 MG/KG (A SINGLE INFUSION)
     Route: 041
  14. CYCLOPHOSPHAMIDE. [Suspect]
     Active Substance: CYCLOPHOSPHAMIDE
     Dosage: UNK
     Route: 048
  15. CYCLOSPORINE. [Suspect]
     Active Substance: CYCLOSPORINE
     Indication: OCULAR HYPERAEMIA
     Dosage: 1 MG (1 GTT/DAY)
     Route: 065
  16. AZATHIOPRINE. [Suspect]
     Active Substance: AZATHIOPRINE
     Indication: POLYCHONDRITIS
     Dosage: UNK
     Route: 065
  17. TROPICAMIDE. [Concomitant]
     Active Substance: TROPICAMIDE
     Indication: POLYCHONDRITIS
     Dosage: 1 % (3 GUT/DAY)
     Route: 061
  18. INFLIXIMAB [Suspect]
     Active Substance: INFLIXIMAB
     Indication: POLYCHONDRITIS
     Dosage: 3 MG/KG, QD
     Route: 041
  19. TIMOLOL. [Concomitant]
     Active Substance: TIMOLOL
     Indication: POLYCHONDRITIS
     Dosage: 0.5 % (2 GUT/DAY)
     Route: 065

REACTIONS (10)
  - Cardio-respiratory arrest [Fatal]
  - Laryngeal disorder [Unknown]
  - Hypertension [Unknown]
  - Sinonasal papilloma [Unknown]
  - Renal failure [Unknown]
  - Escherichia sepsis [Recovered/Resolved]
  - Drug intolerance [Unknown]
  - Diarrhoea [Recovering/Resolving]
  - Arthritis [Unknown]
  - Product use in unapproved indication [Unknown]
